FAERS Safety Report 16777275 (Version 1)
Quarter: 2019Q3

REPORT INFORMATION
  Report Type: Spontaneous
  Country: LT (occurrence: LT)
  Receive Date: 20190905
  Receipt Date: 20190905
  Transmission Date: 20191005
  Serious: Yes (Hospitalization)
  Sender: FDA-Public Use
  Company Number: LT-ALLERGAN-1936144US

PATIENT
  Sex: Male
  Weight: 62 kg

DRUGS (4)
  1. SALOFALK [MESALAZINE] [Suspect]
     Active Substance: MESALAMINE
     Indication: COLITIS ULCERATIVE
     Dosage: 4 G IN DAY
     Route: 054
     Dates: start: 20190523, end: 20190808
  2. PREDNISOLONE. [Concomitant]
     Active Substance: PREDNISOLONE
     Dosage: 40 MG IN DAY
     Route: 048
     Dates: start: 20190703
  3. MESALAZINE UNK [Suspect]
     Active Substance: MESALAMINE
     Indication: COLITIS ULCERATIVE
     Dosage: 3 G IN DAY
     Route: 048
     Dates: start: 20190523, end: 20190808
  4. OMEPRAZOLE. [Concomitant]
     Active Substance: OMEPRAZOLE
     Dosage: 20 MG IN DAY
     Route: 048
     Dates: start: 20170707

REACTIONS (3)
  - Enterocolitis haemorrhagic [Recovered/Resolved]
  - Ventricular dysfunction [Recovering/Resolving]
  - Drug ineffective [Unknown]

NARRATIVE: CASE EVENT DATE: 20190722
